FAERS Safety Report 21408054 (Version 1)
Quarter: 2022Q4

REPORT INFORMATION
  Report Type: Other
  Country: US (occurrence: US)
  Receive Date: 20221004
  Receipt Date: 20221004
  Transmission Date: 20230112
  Serious: Yes (Other)
  Sender: FDA-Public Use
  Company Number: US-GBT-016527

PATIENT
  Age: 12 Year
  Sex: Female

DRUGS (2)
  1. OXBRYTA [Suspect]
     Active Substance: VOXELOTOR
     Indication: Product used for unknown indication
  2. ENDARI [Suspect]
     Active Substance: GLUTAMINE
     Indication: Product used for unknown indication

REACTIONS (3)
  - Gallbladder disorder [Unknown]
  - Vomiting [Unknown]
  - Appendicectomy [Unknown]
